FAERS Safety Report 11407084 (Version 11)
Quarter: 2016Q1

REPORT INFORMATION
  Report Type: Report from Study
  Country: TR (occurrence: TR)
  Receive Date: 20150821
  Receipt Date: 20160321
  Transmission Date: 20160525
  Serious: Yes (Hospitalization, Other)
  Sender: FDA-Public Use
  Company Number: TR-ABBVIE-15P-161-1449800-00

PATIENT
  Age: 67 Year
  Sex: Male
  Weight: 65 kg

DRUGS (5)
  1. DUODOPA [Suspect]
     Active Substance: CARBIDOPA\LEVODOPA
     Indication: PARKINSON^S DISEASE
     Dosage: MD: 8.5 ML/CD:5.3 ML/ED: 1.5 ML
     Route: 050
     Dates: start: 20150309
  2. DUODOPA [Suspect]
     Active Substance: CARBIDOPA\LEVODOPA
     Dosage: CONTINIOUS DOSE: 6.0 ML
     Route: 050
     Dates: end: 20151211
  3. STALEVO [Concomitant]
     Active Substance: CARBIDOPA\ENTACAPONE\LEVODOPA
     Indication: PARKINSON^S DISEASE
     Route: 048
     Dates: start: 2005, end: 20150821
  4. MOTILIUM [Concomitant]
     Active Substance: DOMPERIDONE
     Indication: NAUSEA
     Dosage: 1X3 CUP
     Route: 048
     Dates: start: 2014, end: 20150821
  5. LUSTRAL [Concomitant]
     Active Substance: SERTRALINE HYDROCHLORIDE
     Indication: SLEEP DISORDER
     Route: 048
     Dates: start: 2014, end: 20150821

REACTIONS (8)
  - Intentional medical device removal by patient [Unknown]
  - Dyspnoea [Recovered/Resolved]
  - Decubitus ulcer [Not Recovered/Not Resolved]
  - Increased bronchial secretion [Recovered/Resolved]
  - Pyrexia [Not Recovered/Not Resolved]
  - Urinary tract infection [Not Recovered/Not Resolved]
  - Drug dose omission [Not Recovered/Not Resolved]
  - Pyrexia [Recovered/Resolved]

NARRATIVE: CASE EVENT DATE: 20150821
